FAERS Safety Report 25131274 (Version 1)
Quarter: 2025Q1

REPORT INFORMATION
  Report Type: Spontaneous
  Country: CA (occurrence: CA)
  Receive Date: 20250327
  Receipt Date: 20250327
  Transmission Date: 20250408
  Serious: Yes (Other)
  Sender: ANI
  Company Number: CA-ANIPHARMA-2025-CA-001071

PATIENT
  Age: 53 Year
  Sex: Male
  Weight: 72 kg

DRUGS (11)
  1. CANDESARTAN CILEXETIL [Suspect]
     Active Substance: CANDESARTAN CILEXETIL
     Indication: Product used for unknown indication
     Route: 048
  2. DULOXETINE HYDROCHLORIDE [Suspect]
     Active Substance: DULOXETINE HYDROCHLORIDE
     Route: 048
  3. PRAVASTATIN SODIUM [Suspect]
     Active Substance: PRAVASTATIN SODIUM
     Route: 048
  4. BRILINTA [Suspect]
     Active Substance: TICAGRELOR
     Route: 048
  5. ROSUVASTATIN [Suspect]
     Active Substance: ROSUVASTATIN
     Route: 048
  6. ASCORBIC ACID [Concomitant]
     Active Substance: ASCORBIC ACID
  7. ASPIRIN [Concomitant]
     Active Substance: ASPIRIN
  8. RAMIPRIL [Suspect]
     Active Substance: RAMIPRIL
     Route: 048
  9. METOPROLOL TARTRATE [Suspect]
     Active Substance: METOPROLOL TARTRATE
  10. ATORVASTATIN [Suspect]
     Active Substance: ATORVASTATIN
  11. AVAPRO [Suspect]
     Active Substance: IRBESARTAN

REACTIONS (7)
  - Angina pectoris [Unknown]
  - Blood urine present [Unknown]
  - Cough [Unknown]
  - Disturbance in attention [Unknown]
  - Gait disturbance [Unknown]
  - Loss of control of legs [Unknown]
  - Pain in extremity [Unknown]
